FAERS Safety Report 6411167-8 (Version None)
Quarter: 2009Q4

REPORT INFORMATION
  Report Type: 
  Country: None (occurrence: None)
  Receive Date: 20091022
  Receipt Date: 20091015
  Transmission Date: 20100525
  Serious: Yes (Death, Hospitalization, Other)
  Sender: FDA-Public Use
  Company Number: DE-PFIZER INC-2008151156

PATIENT
  Age: 76 Year

DRUGS (3)
  1. CARDULAR [Suspect]
     Indication: HYPERTENSION
     Dosage: 4 MG, 1X/DAY
     Route: 048
     Dates: start: 20000101, end: 20080914
  2. RAMIPRIL [Suspect]
     Indication: HYPERTENSION
     Dosage: 5 MG, 2X/DAY
     Route: 048
     Dates: start: 20040101, end: 20080914
  3. MAGNESIUM [Concomitant]
     Dosage: 2X1 TABLET DAILY
     Route: 048
     Dates: start: 20000101

REACTIONS (5)
  - CARDIAC FAILURE [None]
  - MULTI-ORGAN FAILURE [None]
  - PANCREATITIS ACUTE [None]
  - PANCREATITIS NECROTISING [None]
  - SEPTIC SHOCK [None]
